FAERS Safety Report 21993193 (Version 2)
Quarter: 2023Q1

REPORT INFORMATION
  Report Type: Report from Study
  Country: JP (occurrence: JP)
  Receive Date: 20230215
  Receipt Date: 20230306
  Transmission Date: 20230418
  Serious: Yes (Death, Hospitalization, Other)
  Sender: FDA-Public Use
  Company Number: JP-AMGEN-JPNNI2023019792

PATIENT
  Age: 8 Decade
  Sex: Male
  Weight: 60.5 kg

DRUGS (24)
  1. ETELCALCETIDE [Suspect]
     Active Substance: ETELCALCETIDE
     Indication: Hyperparathyroidism secondary
     Dosage: 2.5 MILLIGRAM, EVERY 56 HOURS (INTRAVENOUS INJECTION FOR DIALYSIS)
     Route: 010
     Dates: start: 20191227
  2. DARBEPOETIN ALFA [Concomitant]
     Active Substance: DARBEPOETIN ALFA
     Indication: Product used for unknown indication
     Dosage: 20 MICROGRAM, QWK
     Route: 065
     Dates: start: 20200221
  3. DARBEPOETIN ALFA [Concomitant]
     Active Substance: DARBEPOETIN ALFA
     Dosage: 30 MICROGRAM, QWK
     Route: 065
     Dates: start: 20200228, end: 20200424
  4. DARBEPOETIN ALFA [Concomitant]
     Active Substance: DARBEPOETIN ALFA
     Dosage: 40 MICROGRAM, QWK
     Route: 065
     Dates: start: 20200501, end: 20210108
  5. DARBEPOETIN ALFA [Concomitant]
     Active Substance: DARBEPOETIN ALFA
     Dosage: 60 MICROGRAM, QWK
     Route: 065
     Dates: start: 20210115
  6. ROCALTROL [Concomitant]
     Active Substance: CALCITRIOL
     Dosage: 0.5 MICROGRAM
     Route: 065
     Dates: start: 20190920
  7. ROCALTROL [Concomitant]
     Active Substance: CALCITRIOL
     Dosage: 0.5 MICROGRAM
     Route: 065
     Dates: start: 20191030
  8. ROCALTROL [Concomitant]
     Active Substance: CALCITRIOL
     Dosage: 1.0 MICROGRAM, QWK
     Route: 065
     Dates: start: 20191101, end: 20191206
  9. ROCALTROL [Concomitant]
     Active Substance: CALCITRIOL
     Dosage: 0.5 MICROGRAM, Q84H
     Route: 065
     Dates: start: 20191104, end: 20191211
  10. ROCALTROL [Concomitant]
     Active Substance: CALCITRIOL
     Dosage: 0.5 MICROGRAM, Q56H
     Route: 065
     Dates: start: 20191213, end: 20200226
  11. ROCALTROL [Concomitant]
     Active Substance: CALCITRIOL
     Dosage: 1.0 MICROGRAM, QWK
     Route: 065
     Dates: start: 20200228, end: 20200529
  12. ROCALTROL [Concomitant]
     Active Substance: CALCITRIOL
     Dosage: 0.5 MICROGRAM, Q84H
     Route: 065
     Dates: start: 20200302, end: 20200603
  13. CALCITRIOL [Concomitant]
     Active Substance: CALCITRIOL
     Dosage: 1.0 MICROGRAM, QWK
     Route: 040
     Dates: start: 20200605, end: 20210129
  14. CALCITRIOL [Concomitant]
     Active Substance: CALCITRIOL
     Dosage: 0.5 MICROGRAM, Q84H
     Route: 040
     Dates: start: 20200608, end: 20210127
  15. CALCITRIOL [Concomitant]
     Active Substance: CALCITRIOL
     Dosage: 1.0 MICROGRAM, Q84H
     Route: 040
     Dates: start: 20210203, end: 20220225
  16. CALCITRIOL [Concomitant]
     Active Substance: CALCITRIOL
     Dosage: 0.5 MICROGRAM, QWK
     Route: 040
     Dates: start: 20210201, end: 20220221
  17. CALCITRIOL [Concomitant]
     Active Substance: CALCITRIOL
     Dosage: 0.5 MICROGRAM, Q56H
     Route: 040
     Dates: start: 20220228
  18. FOSRENOL [Concomitant]
     Active Substance: LANTHANUM CARBONATE
     Dosage: 750 MILLIGRAM, QD
     Route: 048
     Dates: start: 20200214, end: 20200625
  19. Fesin [Concomitant]
     Dosage: 40 MILLIGRAM, QWK
     Route: 065
     Dates: start: 20200420, end: 20200713
  20. Fesin [Concomitant]
     Dosage: 40 MILLIGRAM, QWK
     Route: 065
     Dates: start: 20201102, end: 20210809
  21. Fesin [Concomitant]
     Dosage: 40 MILLIGRAM, QWK
     Route: 065
     Dates: start: 20220103, end: 20220328
  22. LANTHANUM CARBONATE [Concomitant]
     Active Substance: LANTHANUM CARBONATE
     Dosage: 750 MILLIGRAM, QD
     Route: 048
     Dates: start: 20200626, end: 20201001
  23. LANTHANUM CARBONATE [Concomitant]
     Active Substance: LANTHANUM CARBONATE
     Dosage: 250 MILLIGRAM, QD
     Route: 048
     Dates: start: 20201002, end: 20220127
  24. LANTHANUM CARBONATE [Concomitant]
     Active Substance: LANTHANUM CARBONATE
     Dosage: 750 MILLIGRAM, QD
     Route: 048
     Dates: start: 20220128

REACTIONS (1)
  - Septic shock [Fatal]

NARRATIVE: CASE EVENT DATE: 20220913
